APPROVED DRUG PRODUCT: PREDSULFAIR II
Active Ingredient: PREDNISOLONE ACETATE; SULFACETAMIDE SODIUM
Strength: 0.2%;10%
Dosage Form/Route: SUSPENSION/DROPS;OPHTHALMIC
Application: A088837 | Product #001
Applicant: PHARMAFAIR INC
Approved: Dec 24, 1985 | RLD: No | RS: No | Type: DISCN